FAERS Safety Report 11048694 (Version 1)
Quarter: 2015Q2

REPORT INFORMATION
  Report Type: Spontaneous
  Country: TR (occurrence: TR)
  Receive Date: 20150420
  Receipt Date: 20150420
  Transmission Date: 20150821
  Serious: Yes (Hospitalization, Disabling, Other)
  Sender: FDA-Public Use
  Company Number: TR-ACTAVIS-2015-08055

PATIENT
  Age: 28 Year
  Sex: Female
  Weight: 64 kg

DRUGS (1)
  1. TETRADOX [Suspect]
     Active Substance: DOXYCYCLINE HYDROCHLORIDE
     Indication: VAGINAL INFECTION
     Dosage: 200 MG, DAILY (2X1 ON A FULL STOMACH)
     Route: 048
     Dates: start: 20150118

REACTIONS (2)
  - Pain [Unknown]
  - Erosive oesophagitis [Unknown]

NARRATIVE: CASE EVENT DATE: 20150118
